FAERS Safety Report 5883949-2 (Version None)
Quarter: 2008Q3

REPORT INFORMATION
  Report Type: 
  Country: None (occurrence: None)
  Receive Date: 20080912
  Receipt Date: 20080912
  Transmission Date: 20090109
  Serious: No
  Sender: FDA-Public Use
  Company Number: None

PATIENT
  Sex: Male
  Weight: 112.72 kg

DRUGS (1)
  1. MITOXANTRONE HYDROCHLORIDE [Suspect]
     Dosage: 72 MG

REACTIONS (4)
  - ACUTE MYELOID LEUKAEMIA [None]
  - LIMB INJURY [None]
  - OEDEMA PERIPHERAL [None]
  - WHITE BLOOD CELL COUNT DECREASED [None]
